FAERS Safety Report 17579901 (Version 2)
Quarter: 2020Q2

REPORT INFORMATION
  Report Type: Spontaneous
  Country: CN (occurrence: CN)
  Receive Date: 20200325
  Receipt Date: 20200407
  Transmission Date: 20200713
  Serious: Yes (Hospitalization, Other)
  Sender: FDA-Public Use
  Company Number: CN-JNJFOC-20200324572

PATIENT
  Sex: Female

DRUGS (2)
  1. SPORANOX [Suspect]
     Active Substance: ITRACONAZOLE
     Indication: DERMATOPHYTOSIS OF NAIL
     Dosage: 2016 OR 2017
     Route: 048
  2. SPORANOX [Suspect]
     Active Substance: ITRACONAZOLE
     Dosage: 2017 OR 2018
     Route: 048

REACTIONS (5)
  - Hypertension [Unknown]
  - Therapy cessation [Unknown]
  - Neuropathy peripheral [Not Recovered/Not Resolved]
  - Suicidal ideation [Unknown]
  - Depression [Unknown]
